FAERS Safety Report 6240718-1 (Version None)
Quarter: 2009Q2

REPORT INFORMATION
  Report Type: 
  Country: None (occurrence: None)
  Receive Date: 20090623
  Receipt Date: 20090220
  Transmission Date: 20091009
  Serious: No
  Sender: FDA-Public Use
  Company Number: US-ASTRAZENECA-2009UW04779

PATIENT
  Age: 10577 Day
  Sex: Female
  Weight: 72.6 kg

DRUGS (2)
  1. PULMICORT FLEXHALER [Suspect]
     Indication: COUGH
     Dosage: ^720 DAILY BID^
     Route: 055
     Dates: start: 20090120
  2. PULMICORT FLEXHALER [Suspect]
     Indication: HYPERSENSITIVITY
     Dosage: ^720 DAILY BID^
     Route: 055
     Dates: start: 20090120

REACTIONS (2)
  - COUGH [None]
  - OROPHARYNGEAL PAIN [None]
